FAERS Safety Report 5934816-7 (Version None)
Quarter: 2008Q4

REPORT INFORMATION
  Report Type: 
  Country: None (occurrence: None)
  Receive Date: 20081027
  Receipt Date: 20081014
  Transmission Date: 20090506
  Serious: Yes (Hospitalization, Other)
  Sender: FDA-Public Use
  Company Number: 2008BI027468

PATIENT
  Age: 52 Year
  Sex: Male

DRUGS (4)
  1. AVONEX [Suspect]
     Indication: MULTIPLE SCLEROSIS
     Dosage: 30 UG;QW;IM
     Route: 030
     Dates: start: 20020917, end: 20030101
  2. AVONEX [Suspect]
     Indication: MULTIPLE SCLEROSIS
     Dosage: 30 UG;QW;IM
     Route: 030
     Dates: start: 20030101
  3. CON MEDS [Concomitant]
  4. PREV MEDS [Concomitant]

REACTIONS (7)
  - BACK PAIN [None]
  - GAIT DISTURBANCE [None]
  - INADEQUATE ANALGESIA [None]
  - RECURRENT CANCER [None]
  - SKIN CANCER [None]
  - SYNOVIAL CYST [None]
  - WHIPLASH INJURY [None]
